FAERS Safety Report 4842672-3 (Version None)
Quarter: 2005Q4

REPORT INFORMATION
  Report Type: 
  Country: None (occurrence: None)
  Receive Date: 20051129
  Receipt Date: 20051111
  Transmission Date: 20060501
  Serious: Yes (Disabling, Other)
  Sender: FDA-Public Use
  Company Number: USA050494672

PATIENT
  Age: 51 Year
  Sex: Male
  Weight: 62.3 kg

DRUGS (6)
  1. HUMALOG [Suspect]
     Indication: DIABETES MELLITUS
     Dosage: AS NEEDED
     Dates: start: 20030101
  2. HUMULIN(HUMAN INSULIN (RDNA ORIGIN) NPH [Suspect]
     Indication: DIABETES MELLITUS INSULIN-DEPENDENT
     Dates: start: 19990101, end: 20010101
  3. HUMULIN R [Suspect]
     Indication: DIABETES MELLITUS INSULIN-DEPENDENT
     Dates: start: 19990101, end: 20020101
  4. HUMULIN L [Suspect]
     Indication: DIABETES MELLITUS INSULIN-DEPENDENT
  5. ILETIN [Suspect]
     Indication: DIABETES MELLITUS
     Dates: start: 19680101, end: 19990101
  6. LANTUS [Concomitant]

REACTIONS (11)
  - BLOOD GLUCOSE INCREASED [None]
  - CONFUSIONAL STATE [None]
  - CONVULSION [None]
  - HYPERHIDROSIS [None]
  - HYPERMETABOLISM [None]
  - HYPOGLYCAEMIA [None]
  - LOSS OF CONSCIOUSNESS [None]
  - MOOD ALTERED [None]
  - PHARMACEUTICAL PRODUCT COMPLAINT [None]
  - TREMOR [None]
  - WEIGHT GAIN POOR [None]
